FAERS Safety Report 6803325-5 (Version None)
Quarter: 2010Q2

REPORT INFORMATION
  Report Type: 
  Country: None (occurrence: None)
  Receive Date: 20100628
  Receipt Date: 20100616
  Transmission Date: 20101027
  Serious: Yes (Death)
  Sender: FDA-Public Use
  Company Number: JP-ROCHE-666727

PATIENT
  Age: 33 Year
  Sex: Male

DRUGS (4)
  1. CELLCEPT [Suspect]
     Indication: ACUTE GRAFT VERSUS HOST DISEASE
     Dosage: NOTE: 500MG51000MG
     Route: 048
  2. TACROLIMUS [Concomitant]
     Indication: PROPHYLAXIS AGAINST GRAFT VERSUS HOST DISEASE
     Route: 048
  3. METHOTRATE [Concomitant]
     Indication: ACUTE GRAFT VERSUS HOST DISEASE
     Route: 042
  4. METHOTREXATE [Concomitant]
     Dosage: ROUTE: INJECTABLE (NOT OTHERWISE SPECIFIED)
     Route: 041

REACTIONS (2)
  - CYTOMEGALOVIRUS TEST POSITIVE [None]
  - SEPSIS [None]
